FAERS Safety Report 15904035 (Version 2)
Quarter: 2019Q1

REPORT INFORMATION
  Report Type: Spontaneous
  Country: US (occurrence: US)
  Receive Date: 20190204
  Receipt Date: 20190210
  Transmission Date: 20190417
  Serious: No
  Sender: FDA-Public Use
  Company Number: US-JNJFOC-20190125341

PATIENT
  Sex: Female
  Weight: 61.24 kg

DRUGS (14)
  1. TYLENOL REGULAR STRENGTH [Suspect]
     Active Substance: ACETAMINOPHEN
     Indication: BURNING SENSATION
     Route: 048
  2. OLAY [Concomitant]
     Indication: BURNING SENSATION
     Route: 065
  3. TYLENOL REGULAR STRENGTH [Suspect]
     Active Substance: ACETAMINOPHEN
     Indication: ERYTHEMA
     Route: 048
  4. NEUTROGENA NATURALS PURIPURIFYING CREAM CLEANSER 6 OUNCE [Concomitant]
     Indication: ACNE
     Route: 061
     Dates: start: 20190106
  5. OLAY [Concomitant]
     Indication: SKIN ATROPHY
     Route: 065
  6. NEUTROGENA OIL FREE MOISTURIZER [Concomitant]
     Indication: ERYTHEMA
     Route: 065
  7. OLAY [Concomitant]
     Indication: ERYTHEMA
     Route: 065
  8. NEUTROGENA OIL FREE MOISTURIZER [Concomitant]
     Indication: BURNING SENSATION
     Route: 065
  9. NEUTROGENA OIL FREE MOISTURIZER [Concomitant]
     Indication: SKIN WRINKLING
     Route: 065
  10. OLAY [Concomitant]
     Indication: SKIN WRINKLING
     Route: 065
  11. TYLENOL REGULAR STRENGTH [Suspect]
     Active Substance: ACETAMINOPHEN
     Indication: SKIN ATROPHY
     Route: 048
  12. ASPIRIN. [Concomitant]
     Active Substance: ASPIRIN
     Indication: PRODUCT USED FOR UNKNOWN INDICATION
     Route: 065
  13. TYLENOL REGULAR STRENGTH [Suspect]
     Active Substance: ACETAMINOPHEN
     Indication: SKIN WRINKLING
     Route: 048
  14. NEUTROGENA OIL FREE MOISTURIZER [Concomitant]
     Indication: SKIN ATROPHY
     Route: 065

REACTIONS (1)
  - Product use in unapproved indication [Unknown]
